FAERS Safety Report 19726271 (Version 1)
Quarter: 2021Q3

REPORT INFORMATION
  Report Type: Spontaneous
  Country: US (occurrence: US)
  Receive Date: 20210819
  Receipt Date: 20210819
  Transmission Date: 20211014
  Serious: No
  Sender: FDA-Public Use
  Company Number: US-XERIS PHARMACEUTICALS-2021XER00018

PATIENT
  Sex: Female

DRUGS (3)
  1. UNSPECIFIED LONG?ACTING INSULIN [Concomitant]
  2. UNSPECIFIED QUICK?ACTING INSULIN [Concomitant]
  3. GVOKE [Suspect]
     Active Substance: GLUCAGON
     Indication: HYPOGLYCAEMIA
     Dosage: UNK
     Dates: start: 20210720, end: 20210720

REACTIONS (7)
  - Headache [Not Recovered/Not Resolved]
  - Fear [Not Recovered/Not Resolved]
  - Drug ineffective [Recovered/Resolved]
  - Blood glucose increased [Not Recovered/Not Resolved]
  - Device delivery system issue [Recovered/Resolved]
  - Extra dose administered [Recovered/Resolved]
  - Injection site pain [Unknown]

NARRATIVE: CASE EVENT DATE: 20210720
